FAERS Safety Report 9867402 (Version 1)
Quarter: 2014Q1

REPORT INFORMATION
  Report Type: Spontaneous
  Country: US (occurrence: US)
  Receive Date: 20140204
  Receipt Date: 20140204
  Transmission Date: 20141002
  Serious: No
  Sender: FDA-Public Use
  Company Number: US-009507513-1401USA011138

PATIENT
  Sex: 0
  Weight: 67.12 kg

DRUGS (1)
  1. NEXPLANON [Suspect]
     Dosage: 1 DF, UNK
     Route: 059
     Dates: start: 20120809, end: 20140114

REACTIONS (2)
  - Device breakage [Recovered/Resolved]
  - No adverse event [Unknown]
